FAERS Safety Report 5113461-X (Version None)
Quarter: 2006Q3

REPORT INFORMATION
  Report Type: 
  Country: None (occurrence: None)
  Receive Date: 20060920
  Receipt Date: 20060907
  Transmission Date: 20061208
  Serious: Yes (Hospitalization, Other)
  Sender: FDA-Public Use
  Company Number: HQWYE561205JUL06

PATIENT
  Age: 84 Year
  Sex: Male

DRUGS (7)
  1. PANTOPRAZOLE SODIUM [Suspect]
     Dosage: 40 MG 1X PER 1 DAY
     Route: 048
     Dates: end: 20060522
  2. PREVISCAN (FLUINDIONE, ) [Suspect]
     Dosage: 25 MG 1X PER 1 DAY
     Route: 048
     Dates: end: 20060522
  3. DIGOXIN [Concomitant]
  4. LORAZEPAM [Concomitant]
  5. ACARBOSE [Concomitant]
  6. NOVONORM (REPAGLINIDE) [Concomitant]
  7. MIRTAZAPINE [Concomitant]

REACTIONS (4)
  - HAEMATURIA [None]
  - INTERNATIONAL NORMALISED RATIO INCREASED [None]
  - THROMBOSIS [None]
  - URINARY RETENTION [None]
